FAERS Safety Report 4832898-7 (Version None)
Quarter: 2005Q4

REPORT INFORMATION
  Report Type: 
  Country: None (occurrence: None)
  Receive Date: 20051121
  Receipt Date: 20051110
  Transmission Date: 20060501
  Serious: Yes (Life-Threatening)
  Sender: FDA-Public Use
  Company Number: IT-GLAXOSMITHKLINE-B0400958A

PATIENT
  Age: 62 Year
  Sex: Male

DRUGS (4)
  1. ZANTAC [Suspect]
     Indication: DRUG USE FOR UNKNOWN INDICATION
     Route: 042
     Dates: start: 20051108, end: 20051108
  2. CHLORPHENIRAMINE MALEATE [Concomitant]
  3. DEXAMETHASONE SODIUM PHOSPHATE [Concomitant]
  4. PACLITAXEL [Concomitant]

REACTIONS (3)
  - CYANOSIS [None]
  - DYSPNOEA [None]
  - LARYNGEAL OEDEMA [None]
